FAERS Safety Report 10768861 (Version 2)
Quarter: 2015Q2

REPORT INFORMATION
  Report Type: Spontaneous
  Country: US (occurrence: None)
  Receive Date: 20150204
  Receipt Date: 20150430
  Transmission Date: 20150821
  Serious: Yes (Death)
  Sender: FDA-Public Use
  Company Number: 1713747-2015-99935

PATIENT
  Age: 45 Year
  Sex: Male
  Weight: 105 kg

DRUGS (15)
  1. RENA-VITE [Concomitant]
     Active Substance: VITAMINS
  2. VITAMIN D [Concomitant]
     Active Substance: CHOLECALCIFEROL
  3. LIBERTY CYCLER SET [Concomitant]
  4. SENSIPAR [Concomitant]
     Active Substance: CINACALCET HYDROCHLORIDE
  5. PHOSLO [Concomitant]
     Active Substance: CALCIUM ACETATE
  6. LANTUS [Concomitant]
     Active Substance: INSULIN GLARGINE
  7. DELFLEX [Suspect]
     Active Substance: CALCIUM CHLORIDE\DEXTROSE MONOHYDRATE\MAGNESIUM CHLORIDE\SODIUM CHLORIDE\SODIUM LACTATE
     Indication: CHRONIC KIDNEY DISEASE
     Dosage: PERITONEAL
     Dates: start: 20130111, end: 20150111
  8. TUMS [Concomitant]
     Active Substance: CALCIUM CARBONATE
  9. HUMALOG KWIKPEN [Concomitant]
     Active Substance: INSULIN LISPRO
  10. LACTULOSE. [Concomitant]
     Active Substance: LACTULOSE
  11. EPOGEN [Concomitant]
     Active Substance: ERYTHROPOIETIN
  12. FERROUS SULFATE [Concomitant]
     Active Substance: FERROUS SULFATE\FERROUS SULFATE, DRIED
  13. LIBERTY CYCLER [Concomitant]
     Active Substance: DEVICE
  14. MAGNESIUM OXIDE. [Concomitant]
     Active Substance: MAGNESIUM OXIDE
  15. TRAMADOL [Concomitant]
     Active Substance: TRAMADOL

REACTIONS (1)
  - Death [None]

NARRATIVE: CASE EVENT DATE: 20150111
